FAERS Safety Report 14061970 (Version 2)
Quarter: 2022Q3

REPORT INFORMATION
  Report Type: Report from Study
  Country: FR (occurrence: FR)
  Receive Date: 20171009
  Receipt Date: 20220704
  Transmission Date: 20221027
  Serious: Yes (Hospitalization, Other)
  Sender: FDA-Public Use
  Company Number: FR-ACCORD-059719

PATIENT
  Age: 36 Year
  Sex: Female

DRUGS (1)
  1. GEMCITABINE [Suspect]
     Active Substance: GEMCITABINE
     Indication: Ovarian cancer metastatic

REACTIONS (3)
  - Thrombotic microangiopathy [Recovered/Resolved]
  - Off label use [Unknown]
  - Acute kidney injury [Recovering/Resolving]
